FAERS Safety Report 5512427-5 (Version None)
Quarter: 2007Q4

REPORT INFORMATION
  Report Type: 
  Country: None (occurrence: None)
  Receive Date: 20071101
  Receipt Date: 20071022
  Transmission Date: 20080405
  Serious: Yes (Hospitalization)
  Sender: FDA-Public Use
  Company Number: 2007S1010799

PATIENT
  Age: 46 Year
  Sex: Male

DRUGS (5)
  1. TERBINAFINE HCL [Suspect]
     Indication: TINEA PEDIS
     Dosage: 250 MG ORAL
     Route: 048
     Dates: start: 20070825, end: 20070926
  2. CLOFIBRATE [Concomitant]
  3. GLIMEPIRIDE [Concomitant]
  4. METFORMIN HCL [Concomitant]
  5. RAMIPRIL [Concomitant]

REACTIONS (4)
  - CONDITION AGGRAVATED [None]
  - PSORIASIS [None]
  - SKIN EXFOLIATION [None]
  - VASCULITIC RASH [None]
